FAERS Safety Report 22264049 (Version 1)
Quarter: 2023Q2

REPORT INFORMATION
  Report Type: Spontaneous
  Country: US (occurrence: None)
  Receive Date: 20230426
  Receipt Date: 20230426
  Transmission Date: 20230722
  Serious: No
  Sender: FDA-Public Use
  Company Number: None

PATIENT
  Age: 49 Year
  Sex: Female
  Weight: 73.21 kg

DRUGS (13)
  1. COPAXONE [Suspect]
     Active Substance: GLATIRAMER ACETATE
     Indication: Multiple sclerosis
     Dosage: FREQUENCY : DAILY;?
     Route: 048
  2. AMBIEN [Concomitant]
  3. AMLODIPINE [Concomitant]
  4. ATORVASTATIN [Concomitant]
  5. CLONAZEPAM [Concomitant]
  6. CYCLOBENZAPRINE [Concomitant]
  7. EPINEPHRINE [Concomitant]
  8. FAMOTIDINE [Concomitant]
     Active Substance: FAMOTIDINE
  9. FERROUS SULFATE [Concomitant]
  10. HYDROXYZINE [Concomitant]
  11. ASPIRIN [Concomitant]
  12. METOPROLOL TARTRATE [Concomitant]
  13. PANTOPRAZOLE [Concomitant]

REACTIONS (3)
  - Myocardial infarction [None]
  - Cerebrovascular accident [None]
  - Therapy interrupted [None]
